FAERS Safety Report 23878395 (Version 3)
Quarter: 2024Q3

REPORT INFORMATION
  Report Type: Spontaneous
  Country: GB (occurrence: GB)
  Receive Date: 20240521
  Receipt Date: 20240716
  Transmission Date: 20241017
  Serious: Yes (Other)
  Sender: AMGEN
  Company Number: GB-PFIZER INC-PV202400064220

PATIENT
  Age: 84 Year
  Sex: Male

DRUGS (2)
  1. ENBREL [Suspect]
     Active Substance: BENZYL ALCOHOL\ETANERCEPT
     Indication: Psoriatic arthropathy
     Dosage: 50 MG, WEEKLY
     Route: 058
  2. ENBREL [Suspect]
     Active Substance: BENZYL ALCOHOL\ETANERCEPT
     Dosage: 50 MG, EVERY 10 DAYS
     Route: 058

REACTIONS (2)
  - Bladder cancer [Unknown]
  - Intentional product misuse [Unknown]
